FAERS Safety Report 6746843-0 (Version None)
Quarter: 2010Q2

REPORT INFORMATION
  Report Type: 
  Country: None (occurrence: None)
  Receive Date: 20100528
  Receipt Date: 20100323
  Transmission Date: 20101027
  Serious: No
  Sender: FDA-Public Use
  Company Number: A0850242A

PATIENT
  Age: 12 Year
  Sex: Female

DRUGS (2)
  1. VENTOLIN [Suspect]
     Dosage: 2PUFF SINGLE DOSE
     Route: 055
     Dates: start: 20100304, end: 20100304
  2. BENADRYL [Concomitant]

REACTIONS (4)
  - HYPERSENSITIVITY [None]
  - PRURITUS [None]
  - RASH [None]
  - URTICARIA [None]
